FAERS Safety Report 13977626 (Version 1)
Quarter: 2017Q3

REPORT INFORMATION
  Report Type: Spontaneous
  Country: US (occurrence: US)
  Receive Date: 20170915
  Receipt Date: 20170915
  Transmission Date: 20171128
  Serious: No
  Sender: FDA-Public Use
  Company Number: US-TAIHO ONCOLOGY INC-EU-2017-01225

PATIENT
  Sex: Female

DRUGS (10)
  1. ACETYLSALICYLIC ACID [Concomitant]
     Active Substance: ASPIRIN
     Dosage: NI
  2. LISINOPRIL. [Concomitant]
     Active Substance: LISINOPRIL
     Dosage: NI
  3. ONDANSETRON [Concomitant]
     Active Substance: ONDANSETRON
     Dosage: NI
  4. DOXYCYCLINE. [Concomitant]
     Active Substance: DOXYCYCLINE
     Dosage: NI
  5. LONSURF [Suspect]
     Active Substance: TIPIRACIL HYDROCHLORIDE\TRIFLURIDINE
     Indication: COLON CANCER
     Dosage: CYCLE 1
     Route: 048
     Dates: start: 20170828
  6. NORCO [Concomitant]
     Active Substance: ACETAMINOPHEN\HYDROCODONE BITARTRATE
     Dosage: NI
  7. MAGNESIUM OXIDE. [Concomitant]
     Active Substance: MAGNESIUM OXIDE
     Dosage: NI
  8. UREA. [Concomitant]
     Active Substance: UREA
     Dosage: NI
  9. ATORVASTATIN [Concomitant]
     Active Substance: ATORVASTATIN
     Dosage: NI
  10. METFORMIN [Concomitant]
     Active Substance: METFORMIN HYDROCHLORIDE
     Dosage: NI

REACTIONS (4)
  - Fatigue [Unknown]
  - Abdominal pain [Unknown]
  - Muscular weakness [Unknown]
  - Nausea [Unknown]

NARRATIVE: CASE EVENT DATE: 2017
